FAERS Safety Report 7949216-8 (Version None)
Quarter: 2011Q4

REPORT INFORMATION
  Report Type: 
  Country: None (occurrence: None)
  Receive Date: 20111130
  Receipt Date: 20111116
  Transmission Date: 20120403
  Serious: Yes (Other)
  Sender: FDA-Public Use
  Company Number: HR-ROCHE-1014879

PATIENT
  Sex: Male

DRUGS (2)
  1. SUFENTANYL [Concomitant]
  2. ALTEPLASE [Suspect]
     Indication: INTRAVENTRICULAR HAEMORRHAGE

REACTIONS (2)
  - BLOOD PRESSURE INCREASED [None]
  - INTRACRANIAL PRESSURE INCREASED [None]
